FAERS Safety Report 20980808 (Version 2)
Quarter: 2022Q2

REPORT INFORMATION
  Report Type: Spontaneous
  Country: FI (occurrence: FI)
  Receive Date: 20220620
  Receipt Date: 20220627
  Transmission Date: 20220720
  Serious: No
  Sender: FDA-Public Use
  Company Number: FI-SA-SAC20220617001045

PATIENT
  Age: 43 Year
  Sex: Male
  Weight: 71 kg

DRUGS (5)
  1. FABRAZYME [Suspect]
     Active Substance: AGALSIDASE BETA
     Dosage: 15 ML (15 ML/H)
  2. FABRAZYME [Suspect]
     Active Substance: AGALSIDASE BETA
     Dosage: 30 ML (ML/H)
  3. PREDNISOLONE [Concomitant]
     Active Substance: PREDNISOLONE
     Indication: Premedication
     Dosage: 40 MG
  4. ACETAMINOPHEN [Concomitant]
     Active Substance: ACETAMINOPHEN
     Indication: Premedication
     Dosage: 1000 MG
  5. RAMIPRIL [Concomitant]
     Active Substance: RAMIPRIL
     Dosage: 25 MG

REACTIONS (4)
  - Pain [Unknown]
  - Sleep disorder [Unknown]
  - Pyrexia [Unknown]
  - Palpitations [Unknown]

NARRATIVE: CASE EVENT DATE: 20151001
